FAERS Safety Report 4833103-8 (Version None)
Quarter: 2005Q4

REPORT INFORMATION
  Report Type: 
  Country: None (occurrence: None)
  Receive Date: 20051121
  Receipt Date: 20051005
  Transmission Date: 20060501
  Serious: Yes (Hospitalization)
  Sender: FDA-Public Use
  Company Number: JP-ROCHE-420494

PATIENT
  Age: 3 Year
  Sex: Female

DRUGS (7)
  1. ROCEPHIN [Suspect]
     Indication: BRONCHITIS
     Route: 041
     Dates: start: 20051001, end: 20051002
  2. ZITHROMAC [Suspect]
     Indication: BRONCHITIS
     Dosage: DOSE FORM = FINE GRANULE
     Route: 048
     Dates: start: 20051001
  3. CEFZON [Concomitant]
     Dosage: FORM = FINE GRANULES
     Route: 048
     Dates: start: 20050927, end: 20051001
  4. BIOFERMIN [Concomitant]
     Dosage: ORAL FORMULATION (NOT OTHERWISE SPECIFIED)
     Route: 048
     Dates: start: 20050927, end: 20051001
  5. PERIACTIN [Concomitant]
     Dosage: ORAL FORMULATION (NOT OTHERWISE SPECIFIED)
     Route: 048
     Dates: start: 20050927, end: 20051001
  6. MUCOSOLVAN [Concomitant]
     Dosage: FORM = ORAL FORMULATION NOT OTHERWISE SPECIFIED
     Route: 048
     Dates: start: 20050927, end: 20051001
  7. MEIACT [Concomitant]
     Dosage: DOSE FORM = FINE GRANULE
     Route: 048
     Dates: start: 20051002

REACTIONS (1)
  - STEVENS-JOHNSON SYNDROME [None]
